FAERS Safety Report 4894416-7 (Version None)
Quarter: 2005Q4

REPORT INFORMATION
  Report Type: 
  Country: None (occurrence: None)
  Receive Date: 20051230
  Receipt Date: 20051130
  Transmission Date: 20060501
  Serious: Yes (Hospitalization)
  Sender: FDA-Public Use
  Company Number: 427074

PATIENT
  Age: 43 Year
  Sex: Male

DRUGS (2)
  1. INTERFERON ALFA (INTERFERON ALFA) [Suspect]
     Indication: HEPATITIS C
     Dosage: 3 MILLIONIU 3 PER 1 WEEK SUBCUTANEOUS
     Route: 058
     Dates: start: 20000215, end: 20000815
  2. RIBAVIRIN [Suspect]
     Indication: HEPATITIS C
     Dosage: 800 MG DAILY
     Dates: start: 20000215, end: 20000815

REACTIONS (9)
  - ARTHRALGIA [None]
  - COLITIS ULCERATIVE [None]
  - CROHN'S DISEASE [None]
  - DRUG DEPENDENCE [None]
  - GENERAL PHYSICAL HEALTH DETERIORATION [None]
  - IRON DEFICIENCY ANAEMIA [None]
  - JOINT EFFUSION [None]
  - PYODERMA GANGRENOSUM [None]
  - WEIGHT DECREASED [None]
